FAERS Safety Report 14300741 (Version 1)
Quarter: 2017Q4

REPORT INFORMATION
  Report Type: Spontaneous
  Country: US (occurrence: US)
  Receive Date: 20171218
  Receipt Date: 20171218
  Transmission Date: 20180321
  Serious: Yes (Hospitalization, Other)
  Sender: FDA-Public Use
  Company Number: None

PATIENT
  Age: 86 Year
  Sex: Female

DRUGS (10)
  1. PREDNISONE. [Concomitant]
     Active Substance: PREDNISONE
  2. MIRTAZAPINE. [Concomitant]
     Active Substance: MIRTAZAPINE
  3. VITAMIN C [Concomitant]
     Active Substance: ASCORBIC ACID
  4. ZINC CHELATE [Concomitant]
  5. ONDANSETRON [Concomitant]
     Active Substance: ONDANSETRON
  6. COSAMIN DS [Concomitant]
  7. VITAMIN D3 [Concomitant]
     Active Substance: CHOLECALCIFEROL
  8. EVISTA [Concomitant]
     Active Substance: RALOXIFENE HYDROCHLORIDE
  9. CALCIUM/D3 [Concomitant]
     Active Substance: CALCIUM\CHOLECALCIFEROL
  10. IMATINIB [Suspect]
     Active Substance: IMATINIB
     Indication: SOFT TISSUE SARCOMA
     Route: 048
     Dates: start: 20170620

REACTIONS (3)
  - Gastrointestinal stromal tumour [None]
  - Face oedema [None]
  - Dysgeusia [None]

NARRATIVE: CASE EVENT DATE: 201711
